FAERS Safety Report 8000571-2 (Version None)
Quarter: 2011Q4

REPORT INFORMATION
  Report Type: 
  Country: None (occurrence: None)
  Receive Date: 20111222
  Receipt Date: 20111209
  Transmission Date: 20120403
  Serious: Yes (Other)
  Sender: FDA-Public Use
  Company Number: IE-AMGEN-IRLSP2011065585

PATIENT
  Age: 78 Year
  Sex: Female
  Weight: 63 kg

DRUGS (10)
  1. CALCICHEW D3 FORTE [Concomitant]
     Dosage: 500 MG, BID
  2. XALATAN [Concomitant]
  3. CENTYL [Concomitant]
     Dosage: 2.5 MG, QD
  4. PRAVAMEL [Concomitant]
     Dosage: 10 UNK, UNK
  5. SPIRIVA [Concomitant]
     Dosage: 18 MUG, UNK
  6. DELTACORTRIL                       /00016201/ [Concomitant]
     Indication: MYALGIA
     Dosage: 5 MG, UNK
  7. PROLIA [Suspect]
     Indication: OSTEOPOROSIS
     Dosage: 60 MG, Q6MO
     Route: 058
     Dates: start: 20110510, end: 20111114
  8. LYRICA [Concomitant]
     Dosage: 20 MG, UNK
  9. PANTOPRAZOLE [Concomitant]
  10. BETOPTIC [Concomitant]

REACTIONS (1)
  - DIARRHOEA [None]
